FAERS Safety Report 8547479-1 (Version None)
Quarter: 2012Q3

REPORT INFORMATION
  Report Type: 
  Country: None (occurrence: None)
  Receive Date: 20120727
  Receipt Date: 20120423
  Transmission Date: 20120928
  Serious: No
  Sender: FDA-Public Use
  Company Number: US-ASTRAZENECA-2012SE26550

PATIENT
  Age: 57 Year
  Sex: Female

DRUGS (1)
  1. SEROQUEL XR [Suspect]
     Route: 048

REACTIONS (3)
  - CARPAL TUNNEL SYNDROME [None]
  - MEMORY IMPAIRMENT [None]
  - ADVERSE DRUG REACTION [None]
